FAERS Safety Report 6955522-6 (Version None)
Quarter: 2010Q3

REPORT INFORMATION
  Report Type: 
  Country: None (occurrence: None)
  Receive Date: 20100826
  Receipt Date: 20100826
  Transmission Date: 20110219
  Serious: Yes (Hospitalization)
  Sender: FDA-Public Use
  Company Number: None

PATIENT
  Sex: Female
  Weight: 69.4 kg

DRUGS (6)
  1. DAUNORUBICIN HCL [Suspect]
     Dosage: 90 MG
     Dates: end: 20090717
  2. METHOTREXATE [Suspect]
     Dosage: 15 MG
     Dates: end: 20090717
  3. PEG-L- ASPARAGINASE (PEGASPARGASE, ONCOSPAR) [Suspect]
     Dosage: 4425 MG
     Dates: end: 20090713
  4. PREDNISONE [Suspect]
     Dosage: 840 MG
     Dates: end: 20090717
  5. VINCRISTINE SULFATE [Suspect]
     Dosage: 4 MG
     Dates: end: 20090717
  6. CYTARABINE [Suspect]
     Dosage: 70 MG
     Dates: end: 20090710

REACTIONS (3)
  - DEHYDRATION [None]
  - FLUID INTAKE REDUCED [None]
  - VOMITING [None]
